FAERS Safety Report 5213838-8 (Version None)
Quarter: 2007Q1

REPORT INFORMATION
  Report Type: 
  Country: None (occurrence: None)
  Receive Date: 20070117
  Receipt Date: 20061222
  Transmission Date: 20070707
  Serious: Yes (Hospitalization)
  Sender: FDA-Public Use
  Company Number: TPA2006A01727

PATIENT
  Age: 44 Year
  Sex: Female
  Weight: 58.514 kg

DRUGS (2)
  1. ROZEREM [Suspect]
     Indication: INSOMNIA
     Dosage: PER ORAL
     Route: 048
     Dates: start: 20061002, end: 20061003
  2. NEURONTIN [Concomitant]

REACTIONS (3)
  - CONDITION AGGRAVATED [None]
  - FEELING ABNORMAL [None]
  - INSOMNIA [None]
